FAERS Safety Report 6213581-2 (Version None)
Quarter: 2009Q2

REPORT INFORMATION
  Report Type: 
  Country: None (occurrence: None)
  Receive Date: 20090603
  Receipt Date: 20090601
  Transmission Date: 20091009
  Serious: Yes (Death, Hospitalization, Other)
  Sender: FDA-Public Use
  Company Number: CU-ROXANE LABORATORIES, INC.-2009-RO-00538RO

PATIENT
  Age: 34 Year
  Sex: Male

DRUGS (10)
  1. PREDNISONE [Suspect]
     Indication: IMMUNOSUPPRESSANT DRUG THERAPY
  2. CYCLOSPORINE [Suspect]
     Indication: IMMUNOSUPPRESSANT DRUG THERAPY
  3. CYCLOSPORINE [Suspect]
  4. ANTIHISTAMINES [Suspect]
     Indication: ACARODERMATITIS
  5. TOPICAL STEROIDS [Suspect]
     Indication: ACARODERMATITIS
     Route: 061
  6. LINDANE [Suspect]
     Indication: ACARODERMATITIS
  7. CIPROFLOXACIN [Suspect]
     Indication: ACARODERMATITIS
     Route: 042
  8. VANCOMYCIN HCL [Suspect]
     Indication: ACARODERMATITIS
     Route: 042
  9. ACYCLOVIR [Suspect]
     Indication: ACARODERMATITIS
     Route: 042
  10. IVERMECTIN [Suspect]
     Indication: ACARODERMATITIS
     Route: 048

REACTIONS (9)
  - ACARODERMATITIS [None]
  - ACINETOBACTER BACTERAEMIA [None]
  - HERPES SIMPLEX [None]
  - HYPOXIA [None]
  - METABOLIC ACIDOSIS [None]
  - PROTEUS INFECTION [None]
  - RENAL IMPAIRMENT [None]
  - SEPSIS [None]
  - WHITE BLOOD CELL COUNT ABNORMAL [None]
